FAERS Safety Report 12790042 (Version 3)
Quarter: 2016Q4

REPORT INFORMATION
  Report Type: Spontaneous
  Country: RO (occurrence: RO)
  Receive Date: 20160928
  Receipt Date: 20161108
  Transmission Date: 20170207
  Serious: Yes (Life-Threatening, Hospitalization, Disabling, Other)
  Sender: FDA-Public Use
  Company Number: RO-ABBVIE-16K-135-1737782-00

PATIENT
  Age: 19 Year
  Sex: Female
  Weight: 54 kg

DRUGS (1)
  1. HUMIRA [Suspect]
     Active Substance: ADALIMUMAB
     Indication: CROHN^S DISEASE
     Route: 058
     Dates: start: 201511, end: 2016

REACTIONS (5)
  - Intestinal fibrosis [Unknown]
  - Treatment failure [Recovering/Resolving]
  - Ileal stenosis [Unknown]
  - Hidradenitis [Recovered/Resolved]
  - Furuncle [Recovering/Resolving]

NARRATIVE: CASE EVENT DATE: 201608
